FAERS Safety Report 13346468 (Version 3)
Quarter: 2017Q2

REPORT INFORMATION
  Report Type: Spontaneous
  Country: US (occurrence: US)
  Receive Date: 20170317
  Receipt Date: 20170428
  Transmission Date: 20170830
  Serious: Yes (Hospitalization, Other)
  Sender: FDA-Public Use
  Company Number: GXBR2017US001064

PATIENT
  Age: 45 Year
  Sex: Female
  Weight: 57.14 kg

DRUGS (1)
  1. AMOXICILLIN AND CLAVULANATE POTASSIUM TABLETS USP [Suspect]
     Active Substance: AMOXICILLIN\CLAVULANATE POTASSIUM
     Indication: TOOTHACHE
     Dosage: 500MG/125MG, Q8H
     Route: 048
     Dates: start: 20160202, end: 20160212

REACTIONS (22)
  - Multi-organ disorder [Unknown]
  - Peripheral swelling [Not Recovered/Not Resolved]
  - Flatulence [Unknown]
  - Constipation [Not Recovered/Not Resolved]
  - Nausea [Not Recovered/Not Resolved]
  - Liver function test increased [Unknown]
  - Acute hepatic failure [Not Recovered/Not Resolved]
  - Seizure [Unknown]
  - Somnolence [Not Recovered/Not Resolved]
  - Autoimmune hepatitis [Not Recovered/Not Resolved]
  - Ocular icterus [Not Recovered/Not Resolved]
  - Haematemesis [Recovered/Resolved]
  - Abdominal distension [Not Recovered/Not Resolved]
  - Hepatic cirrhosis [Not Recovered/Not Resolved]
  - Toothache [Not Recovered/Not Resolved]
  - Yellow skin [Not Recovered/Not Resolved]
  - Loss of consciousness [Unknown]
  - Fluid retention [Not Recovered/Not Resolved]
  - Vomiting [Unknown]
  - Gait disturbance [Not Recovered/Not Resolved]
  - Diarrhoea [Not Recovered/Not Resolved]
  - Pain in extremity [Not Recovered/Not Resolved]

NARRATIVE: CASE EVENT DATE: 20160213
